FAERS Safety Report 9305325 (Version 1)
Quarter: 2013Q2

REPORT INFORMATION
  Report Type: Spontaneous
  Country: US (occurrence: None)
  Receive Date: 20130520
  Receipt Date: 20130520
  Transmission Date: 20140414
  Serious: Yes (Other)
  Sender: FDA-Public Use
  Company Number: 2013-01122

PATIENT
  Age: 67 Year
  Sex: Male

DRUGS (4)
  1. ETHAMBUTOL [Suspect]
     Indication: MYCOBACTERIUM AVIUM COMPLEX INFECTION
     Route: 048
     Dates: start: 201303
  2. RIFAMPIN(UNKNOWN) [Concomitant]
  3. CLARITHROMYCIN (BIAXIN) (UNKNOWN) [Concomitant]
  4. FINASTERIDE (PROSCAR)(UNKNOWN) [Concomitant]

REACTIONS (1)
  - Neuropathy peripheral [None]
